FAERS Safety Report 6530053-6 (Version None)
Quarter: 2010Q1

REPORT INFORMATION
  Report Type: 
  Country: None (occurrence: None)
  Receive Date: 20100104
  Receipt Date: 20091218
  Transmission Date: 20100710
  Serious: Yes (Other)
  Sender: FDA-Public Use
  Company Number: SPV1-2009-02614

PATIENT
  Age: 57 Year
  Sex: Male

DRUGS (6)
  1. PROAMATINE [Suspect]
     Indication: ORTHOSTATIC HYPOTENSION
     Dosage: 30 MG, 1X/DAY:QD, ORAL
     Route: 048
  2. PREDNISONE [Suspect]
     Indication: GOUT
     Dosage: 20 MG
  3. ADRENALIN IN OIL INJ [Suspect]
     Indication: HYPOPHYSECTOMY
     Dosage: 1:100000 UNITS, ONE DOSE, NASAL
     Route: 045
  4. ADRENALIN IN OIL INJ [Suspect]
     Indication: VASOCONSTRICTION
     Dosage: 1:100000 UNITS, ONE DOSE, NASAL
     Route: 045
  5. LIDOCAINE [Suspect]
     Indication: HYPOPHYSECTOMY
     Dosage: 1%, ONE DOSE
  6. LIDOCAINE [Suspect]
     Indication: LOCAL ANAESTHESIA
     Dosage: 1%, ONE DOSE

REACTIONS (3)
  - HYPERTENSION [None]
  - POTENTIATING DRUG INTERACTION [None]
  - TACHYCARDIA [None]
